FAERS Safety Report 16439608 (Version 2)
Quarter: 2019Q3

REPORT INFORMATION
  Report Type: Report from Study
  Country: JP (occurrence: JP)
  Receive Date: 20190617
  Receipt Date: 20190709
  Transmission Date: 20191004
  Serious: Yes (Other)
  Sender: FDA-Public Use
  Company Number: JP-ROCHE-2335335

PATIENT
  Age: 84 Year
  Sex: Male
  Weight: 49.2 kg

DRUGS (14)
  1. RITUXIMAB. [Suspect]
     Active Substance: RITUXIMAB
     Dosage: VOLUME OF LAST DOSE OF RITUXIMAB OF 566 ML WAS ADMINISTERED ON 10/FEB/2015 PRIOR TO SERIOUS ADVERSE
     Route: 042
     Dates: start: 20130406
  2. DOXORUBICIN [Suspect]
     Active Substance: DOXORUBICIN
     Indication: NON-HODGKIN^S LYMPHOMA UNSPECIFIED HISTOLOGY INDOLENT
     Dosage: DATE OF MOST RECENT DOSE OF DOXORUBICIN OF 75 MG PRIOR TO SAE ONSET: 15/FEB/2013
     Route: 042
     Dates: start: 20121031
  3. TIMOLOL MALEATE. [Concomitant]
     Active Substance: TIMOLOL MALEATE
     Indication: GLAUCOMA
  4. RILMAZAFONE HYDROCHLORIDE [Concomitant]
     Active Substance: RILMAZAFONE HYDROCHLORIDE
     Indication: INSOMNIA
     Route: 065
     Dates: start: 20121103
  5. RITUXIMAB. [Suspect]
     Active Substance: RITUXIMAB
     Indication: NON-HODGKIN^S LYMPHOMA UNSPECIFIED HISTOLOGY INDOLENT
     Dosage: VOLUME OF LAST DOSE OF RITUXIMAB OF 566 ML WAS ADMINISTERED ON 10/FEB/2015 PRIOR TO SERIOUS ADVERSE
     Route: 042
     Dates: start: 20121031, end: 20130521
  6. VINCRISTINE [Suspect]
     Active Substance: VINCRISTINE
     Indication: NON-HODGKIN^S LYMPHOMA UNSPECIFIED HISTOLOGY INDOLENT
     Dosage: MAXIMUM 2 MG?DATE OF MOST RECENT DOSE OF VINCRISTINE OF 2 MG PRIOR TO SAE ONSET: 15/FEB/2013
     Route: 042
     Dates: start: 20121031
  7. PREDNISONE. [Suspect]
     Active Substance: PREDNISONE
     Indication: NON-HODGKIN^S LYMPHOMA UNSPECIFIED HISTOLOGY INDOLENT
     Dosage: ON DAYS 1-5 OF EACH CYCLE DURING INDUCTION PERIOD. ?DATE OF MOST RECENT DOSE OF PREDNISONE OF 100 MG
     Route: 048
     Dates: start: 20121031
  8. ROSUVASTATIN CALCIUM. [Concomitant]
     Active Substance: ROSUVASTATIN CALCIUM
     Indication: HYPERLIPIDAEMIA
     Route: 065
     Dates: start: 20121129
  9. VILDAGLIPTIN [Concomitant]
     Active Substance: VILDAGLIPTIN
     Indication: DIABETES MELLITUS
  10. CYCLOPHOSPHAMIDE. [Suspect]
     Active Substance: CYCLOPHOSPHAMIDE
     Indication: NON-HODGKIN^S LYMPHOMA UNSPECIFIED HISTOLOGY INDOLENT
     Dosage: DATE OF MOST RECENT DOSE OF CYCLOPHOSPHAMIDE OF 1133 MG PRIOR TO SAE ONSET: 15/FEB/2014
     Route: 042
     Dates: start: 20121031
  11. SILODOSIN. [Concomitant]
     Active Substance: SILODOSIN
     Indication: BENIGN PROSTATIC HYPERPLASIA
  12. POLAPREZINC [Concomitant]
     Active Substance: POLAPREZINC
     Indication: PROPHYLAXIS AGAINST GASTROINTESTINAL ULCER
     Route: 065
     Dates: start: 20121026
  13. TRAVOPROST. [Concomitant]
     Active Substance: TRAVOPROST
     Indication: GLAUCOMA
     Route: 065
     Dates: start: 20150213
  14. CILOSTAZOL. [Concomitant]
     Active Substance: CILOSTAZOL
     Indication: CEREBRAL INFARCTION
     Route: 065
     Dates: start: 20121202

REACTIONS (1)
  - Prostate cancer [Not Recovered/Not Resolved]

NARRATIVE: CASE EVENT DATE: 20190610
